FAERS Safety Report 20065745 (Version 1)
Quarter: 2021Q4

REPORT INFORMATION
  Report Type: Spontaneous
  Country: BR (occurrence: BR)
  Receive Date: 20211113
  Receipt Date: 20211113
  Transmission Date: 20220303
  Serious: Yes (Other)
  Sender: FDA-Public Use
  Company Number: None

PATIENT
  Age: 63 Year
  Sex: Female
  Weight: 63 kg

DRUGS (8)
  1. LOSARTAN POTASSIUM [Suspect]
     Active Substance: LOSARTAN POTASSIUM
     Indication: Hypertension
     Dosage: 50 MILLIGRAM, QD
     Route: 048
  2. COSENTYX [Suspect]
     Active Substance: SECUKINUMAB
     Indication: Psoriasis
     Dosage: 300 MILLIGRAM, QM
     Route: 058
     Dates: start: 20190809
  3. COSENTYX [Suspect]
     Active Substance: SECUKINUMAB
     Dosage: 300 MILLIGRAM, QM
     Route: 058
     Dates: start: 20190809
  4. COSENTYX [Suspect]
     Active Substance: SECUKINUMAB
     Dosage: 300 MILLIGRAM, QM
     Route: 058
  5. COSENTYX [Suspect]
     Active Substance: SECUKINUMAB
     Dosage: 300 MILLIGRAM, QM
     Route: 058
     Dates: end: 20200306
  6. COSENTYX [Suspect]
     Active Substance: SECUKINUMAB
     Dosage: UNK
     Dates: start: 20210112
  7. COSENTYX [Suspect]
     Active Substance: SECUKINUMAB
     Dosage: UNK
     Dates: start: 20210112
  8. SILIGAZ [DOMPERIDONE] [Concomitant]
     Dosage: UNK

REACTIONS (29)
  - Wound infection [Recovering/Resolving]
  - Skin lesion [Recovering/Resolving]
  - Skin depigmentation [Not Recovered/Not Resolved]
  - Scab [Recovering/Resolving]
  - Gait disturbance [Recovered/Resolved]
  - Pain [Recovering/Resolving]
  - Skin burning sensation [Recovering/Resolving]
  - Inflammation of wound [Recovering/Resolving]
  - Somnolence [Recovered/Resolved]
  - Asthenia [Recovering/Resolving]
  - Pyrexia [Recovered/Resolved]
  - Inflammation [Recovered/Resolved]
  - Pain in extremity [Recovered/Resolved]
  - Hereditary areflexic dystasia [Not Recovered/Not Resolved]
  - Hypoacusis [Unknown]
  - Bradyphrenia [Unknown]
  - Psoriasis [Recovering/Resolving]
  - Fungal infection [Unknown]
  - Purulent discharge [Unknown]
  - Symptom recurrence [Recovered/Resolved]
  - Symptom recurrence [Recovered/Resolved]
  - Lacrimal disorder [Unknown]
  - Crepitations [Unknown]
  - Ill-defined disorder [Unknown]
  - Oedema peripheral [Unknown]
  - Back pain [Recovered/Resolved]
  - Malaise [Not Recovered/Not Resolved]
  - Arthralgia [Unknown]
  - Product dose omission issue [Not Recovered/Not Resolved]

NARRATIVE: CASE EVENT DATE: 20200301
